FAERS Safety Report 11866592 (Version 1)
Quarter: 2015Q4

REPORT INFORMATION
  Report Type: Other
  Country: GB (occurrence: GB)
  Receive Date: 20151224
  Receipt Date: 20151224
  Transmission Date: 20160305
  Serious: Yes (Other)
  Sender: FDA-Public Use
  Company Number: GB-CIPLA LTD.-2015GB09686

PATIENT

DRUGS (5)
  1. SERTRALINE [Suspect]
     Active Substance: SERTRALINE HYDROCHLORIDE
     Dosage: UNK
     Route: 065
     Dates: start: 20151111
  2. PROPRANOLOL [Concomitant]
     Active Substance: PROPRANOLOL\PROPRANOLOL HYDROCHLORIDE
     Dosage: 1 DF, TID
     Route: 065
     Dates: start: 20150909
  3. DIAZEPAM. [Concomitant]
     Active Substance: DIAZEPAM
     Dosage: 1 DF, AT NIGHT (USE SPARINGLY)
     Route: 065
     Dates: start: 20151203
  4. CO-DYDRAMOL [Concomitant]
     Active Substance: ACETAMINOPHEN\DIHYDROCODEINE
     Indication: PAIN
     Dosage: TAKE TWO-FOUR TIMES A DAY WHEN REQUIRED
     Route: 065
     Dates: start: 20151203
  5. DERMOL [Concomitant]
     Active Substance: BENZALKONIUM CHLORIDE\CHLORHEXIDINE HYDROCHLORIDE\ISOPROPYL MYRISTATE\PARAFFIN
     Dosage: AS DIRECTED
     Route: 065
     Dates: start: 20100225

REACTIONS (1)
  - Trismus [Recovered/Resolved]

NARRATIVE: CASE EVENT DATE: 20151203
